FAERS Safety Report 5112865-9 (Version None)
Quarter: 2006Q3

REPORT INFORMATION
  Report Type: 
  Country: None (occurrence: None)
  Receive Date: 20060922
  Receipt Date: 20060912
  Transmission Date: 20061208
  Serious: Yes (Hospitalization)
  Sender: FDA-Public Use
  Company Number: DE-AMGEN-UK193196

PATIENT
  Sex: Female

DRUGS (2)
  1. KINERET [Suspect]
     Indication: JUVENILE ARTHRITIS
     Dates: start: 20051001
  2. HUMIRA [Concomitant]

REACTIONS (4)
  - DRUG HYPERSENSITIVITY [None]
  - EOSINOPHILIA [None]
  - INJECTION SITE ERYTHEMA [None]
  - LEUKOCYTOCLASTIC VASCULITIS [None]
